FAERS Safety Report 5192966-X (Version None)
Quarter: 2006Q4

REPORT INFORMATION
  Report Type: 
  Country: None (occurrence: None)
  Receive Date: 20061228
  Receipt Date: 20060324
  Transmission Date: 20070319
  Serious: No
  Sender: FDA-Public Use
  Company Number: US-GLAXOSMITHKLINE-A0598952A

PATIENT
  Age: 3 Year
  Sex: Male

DRUGS (1)
  1. FLONASE [Suspect]
     Indication: RHINITIS
     Dosage: 1SPR PER DAY
     Route: 045
     Dates: start: 20060301

REACTIONS (2)
  - INSOMNIA [None]
  - RESTLESSNESS [None]
